FAERS Safety Report 10414433 (Version 3)
Quarter: 2014Q3

REPORT INFORMATION
  Report Type: Spontaneous
  Country: JP (occurrence: JP)
  Receive Date: 20140828
  Receipt Date: 20140918
  Transmission Date: 20150326
  Serious: Yes (Other)
  Sender: FDA-Public Use
  Company Number: JP-ROCHE-1455135

PATIENT
  Age: 66 Year
  Sex: Male

DRUGS (1)
  1. ROCEPHIN [Suspect]
     Active Substance: CEFTRIAXONE SODIUM
     Indication: MENINGITIS BACTERIAL
     Dosage: DOSAGE IS UNCERTAIN.
     Route: 042

REACTIONS (3)
  - Bile duct stone [Recovered/Resolved]
  - Cholangitis [Recovered/Resolved]
  - Cholelithiasis [Recovered/Resolved]
